FAERS Safety Report 25756506 (Version 3)
Quarter: 2025Q4

REPORT INFORMATION
  Report Type: Spontaneous
  Country: US (occurrence: US)
  Receive Date: 20250903
  Receipt Date: 20251120
  Transmission Date: 20260118
  Serious: No
  Sender: SANOFI AVENTIS
  Company Number: US-SA-2025SA260311

PATIENT
  Age: 74 Year
  Sex: Female
  Weight: 68 kg

DRUGS (29)
  1. DUPIXENT [Suspect]
     Active Substance: DUPILUMAB
     Indication: Asthma
     Dosage: 300 MG, QOW
     Route: 058
     Dates: start: 202508, end: 2025
  2. DUPIXENT [Suspect]
     Active Substance: DUPILUMAB
     Indication: Essential hypertension
  3. DUPIXENT [Suspect]
     Active Substance: DUPILUMAB
     Indication: Sarcoidosis
  4. BERBERINE [Concomitant]
     Active Substance: BERBERINE
     Dosage: UNK
  5. OMEGA-3 FATTY ACIDS [Concomitant]
     Active Substance: OMEGA-3 FATTY ACIDS
  6. CALCITONIN SALMON [Concomitant]
     Active Substance: CALCITONIN SALMON
  7. MUCINEX [Concomitant]
     Active Substance: GUAIFENESIN
  8. PRASTERONE [Concomitant]
     Active Substance: PRASTERONE
  9. VITAMIN D3 [Concomitant]
     Active Substance: CHOLECALCIFEROL
  10. MONTELUKAST SODIUM [Concomitant]
     Active Substance: MONTELUKAST SODIUM
  11. COLACE [Concomitant]
     Active Substance: DOCUSATE SODIUM
  12. COENZYME Q10 [Concomitant]
     Active Substance: DIETARY SUPPLEMENT\UBIDECARENONE
  13. Adrenaliv [Concomitant]
  14. DIETARY SUPPLEMENT [Concomitant]
     Active Substance: DIETARY SUPPLEMENT
  15. DEMANNOSE [Concomitant]
     Active Substance: DEMANNOSE
  16. FLUTICASONE PROPIONATE [Concomitant]
     Active Substance: FLUTICASONE PROPIONATE
  17. ALBUTEROL SULFATE [Concomitant]
     Active Substance: ALBUTEROL SULFATE
  18. BUPROPION HYDROCHLORIDE [Concomitant]
     Active Substance: BUPROPION HYDROCHLORIDE
  19. Vitafusion PreNatal [Concomitant]
  20. CLARINEX [Concomitant]
     Active Substance: DESLORATADINE
  21. VAGIFEM [Concomitant]
     Active Substance: ESTRADIOL
  22. INCRUSE ELLIPTA [Concomitant]
     Active Substance: UMECLIDINIUM BROMIDE
  23. ADVAIR HFA [Concomitant]
     Active Substance: FLUTICASONE PROPIONATE\SALMETEROL XINAFOATE
  24. PREDNISONE [Concomitant]
     Active Substance: PREDNISONE
  25. PROLIA [Concomitant]
     Active Substance: DENOSUMAB
  26. NAC [Concomitant]
  27. QUNOL COQ10 [Concomitant]
  28. ROFLUMILAST [Concomitant]
     Active Substance: ROFLUMILAST
  29. OXYGEN [Concomitant]
     Active Substance: OXYGEN

REACTIONS (6)
  - Nasopharyngitis [Unknown]
  - Throat tightness [Unknown]
  - Throat irritation [Unknown]
  - Herpes zoster [Unknown]
  - Condition aggravated [Unknown]
  - Product use in unapproved indication [Unknown]

NARRATIVE: CASE EVENT DATE: 20250801
